FAERS Safety Report 21358498 (Version 1)
Quarter: 2022Q3

REPORT INFORMATION
  Report Type: Spontaneous
  Country: US (occurrence: None)
  Receive Date: 20220920
  Receipt Date: 20220920
  Transmission Date: 20221027
  Serious: Yes (Hospitalization)
  Sender: FDA-Public Use
  Company Number: None

PATIENT
  Sex: Female

DRUGS (14)
  1. KISQALI [Suspect]
     Active Substance: RIBOCICLIB
     Indication: Breast cancer female
     Route: 048
     Dates: start: 20220617
  2. ALPRAZOLAM TAB [Concomitant]
  3. ANASTROZOLE TAB [Concomitant]
  4. BENZONATATE CA [Concomitant]
  5. CYCLOBENZAPR TAB [Concomitant]
  6. GABAPENTIN [Concomitant]
     Active Substance: GABAPENTIN
  7. GABAPENTIN [Concomitant]
     Active Substance: GABAPENTIN
  8. LETROZOLE [Concomitant]
     Active Substance: LETROZOLE
  9. PROCHLORPER TAB [Concomitant]
  10. PROCHLORPER TAB [Concomitant]
  11. QUETIAPINE TAB [Concomitant]
  12. VENLAFAXINE CAP [Concomitant]
  13. VITAMIN D CAP [Concomitant]
  14. ZOLPIDEM [Concomitant]
     Active Substance: ZOLPIDEM TARTRATE

REACTIONS (1)
  - Intentional dose omission [None]
